FAERS Safety Report 11243238 (Version 1)
Quarter: 2015Q3

REPORT INFORMATION
  Report Type: Spontaneous
  Country: US (occurrence: None)
  Receive Date: 20150702
  Receipt Date: 20150702
  Transmission Date: 20151125
  Serious: Yes (Other)
  Sender: FDA-Public Use
  Company Number: None

PATIENT
  Age: 63 Year
  Sex: Male
  Weight: 86.18 kg

DRUGS (4)
  1. ASA [Concomitant]
     Active Substance: ASPIRIN
  2. NAPROSYN [Concomitant]
     Active Substance: NAPROXEN
  3. PROPAFENONE ER [Concomitant]
  4. FLECAINIDE ACETATE TABLETS, USP AMNEAL PHARMACEUTICALS PATERSON, NJ 07504 [Suspect]
     Active Substance: FLECAINIDE ACETATE
     Indication: ATRIAL FIBRILLATION
     Route: 048
     Dates: start: 20150413, end: 20150622

REACTIONS (3)
  - Dysgeusia [None]
  - Atrial fibrillation [None]
  - Product measured potency issue [None]

NARRATIVE: CASE EVENT DATE: 20150608
